FAERS Safety Report 9870352 (Version 1)
Quarter: 2014Q1

REPORT INFORMATION
  Report Type: Spontaneous
  Country: US (occurrence: None)
  Receive Date: 20140203
  Receipt Date: 20140203
  Transmission Date: 20141002
  Serious: Yes (Other)
  Sender: FDA-Public Use
  Company Number: 001657283A

PATIENT
  Age: 24 Year
  Sex: Female

DRUGS (6)
  1. PROACTIV+ SKIN EXFOLIATOR [Suspect]
     Indication: ACNE
     Dosage: TWICE DAILY DERMAL
     Dates: start: 20140103, end: 20140105
  2. PORE TARGETING TREATMENT [Suspect]
     Indication: ACNE
     Dates: start: 20140103, end: 20140105
  3. PROACTIV+ COMPLEXION PERFECTING HYDRATOR [Suspect]
     Indication: ACNE
     Dosage: TWICE DAILY DERMAL
     Dates: start: 20140103, end: 20140105
  4. MARK FADING PADS [Suspect]
     Indication: ACNE
     Dosage: TWICE DAILY DERMAL
     Dates: start: 20140103, end: 20140105
  5. COSMETICS [Suspect]
     Indication: ACNE
     Dosage: TWICE DAILY DERMAL
     Dates: start: 20140103, end: 20140105
  6. SKIN PURIFYING MASK [Suspect]
     Indication: ACNE
     Dosage: TWICE DAILY DERMAL
     Dates: start: 20140103, end: 20140105

REACTIONS (3)
  - Swelling face [None]
  - Eye swelling [None]
  - Hypersensitivity [None]
